FAERS Safety Report 10014555 (Version 2)
Quarter: 2014Q2

REPORT INFORMATION
  Report Type: Spontaneous
  Country: FI (occurrence: FI)
  Receive Date: 20140317
  Receipt Date: 20140416
  Transmission Date: 20141212
  Serious: Yes (Other)
  Sender: FDA-Public Use
  Company Number: FI-PFIZER INC-2014074287

PATIENT
  Age: 31 Year
  Sex: Female

DRUGS (9)
  1. LYRICA [Suspect]
     Indication: FRACTURE PAIN
     Dosage: 375 MG, DAILY
  2. LYRICA [Suspect]
     Dosage: 50 MG
  3. LYRICA [Suspect]
     Dosage: 200 MG, UNK
  4. LYRICA [Suspect]
     Dosage: 75 MG-150 MG IRREGULARLY
     Dates: end: 201303
  5. TRAMAL RETARD [Suspect]
     Indication: PAIN
     Dosage: 150-400 MG
  6. TRAMAL RETARD [Suspect]
     Dosage: 400 MG, DAILY
  7. TRAMAL RETARD [Suspect]
     Dosage: 200-400 MG
  8. OXYCONTIN [Suspect]
     Indication: PAIN
     Dosage: 10 MG, 1 TO 3 TIMES A DAY, AS NEEDED
  9. OXYCONTIN [Suspect]
     Dosage: 10-40 MG DAILY, AS NEEDED

REACTIONS (6)
  - Gestational diabetes [Recovered/Resolved]
  - Hydronephrosis [Unknown]
  - Muscle spasms [Unknown]
  - Headache [Unknown]
  - Back pain [Unknown]
  - Drug ineffective [Unknown]
